FAERS Safety Report 24965763 (Version 1)
Quarter: 2025Q1

REPORT INFORMATION
  Report Type: Spontaneous
  Country: US (occurrence: US)
  Receive Date: 20250213
  Receipt Date: 20250213
  Transmission Date: 20250408
  Serious: No
  Sender: BAYER HEALTHCARE PHARMACEUTICALS INC.
  Company Number: US-BAYER-2025A017338

PATIENT
  Age: 17 Year
  Sex: Female

DRUGS (2)
  1. ADEMPAS [Suspect]
     Active Substance: RIOCIGUAT
  2. ADEMPAS [Suspect]
     Active Substance: RIOCIGUAT
     Dosage: 1 MG, TID
     Route: 048
     Dates: start: 20250123

REACTIONS (6)
  - Eye swelling [None]
  - Swelling face [None]
  - Dizziness [None]
  - Nausea [None]
  - Vomiting [None]
  - Nasal congestion [None]
